FAERS Safety Report 7715386-X (Version None)
Quarter: 2011Q3

REPORT INFORMATION
  Report Type: 
  Country: None (occurrence: None)
  Receive Date: 20110829
  Receipt Date: 20110815
  Transmission Date: 20111222
  Serious: Yes (Hospitalization, Other)
  Sender: FDA-Public Use
  Company Number: US-ELI_LILLY_AND_COMPANY-US201108005390

PATIENT
  Age: 67 Year
  Sex: Male

DRUGS (8)
  1. VITAMIN TAB [Concomitant]
  2. FORTEO [Suspect]
     Indication: OSTEOPOROSIS
     Dosage: 20 UG, QD
     Route: 065
     Dates: start: 20100101
  3. TRACE ELEMENTS [Concomitant]
  4. LIQUID CALCIUM                     /00751501/ [Concomitant]
  5. TESTOSTERONE [Concomitant]
  6. CADUET [Concomitant]
     Indication: HYPERTENSION
  7. AMBIEN [Concomitant]
     Indication: SLEEP DISORDER
  8. VITAMIN D [Concomitant]

REACTIONS (6)
  - BACK PAIN [None]
  - SKIN DISCOLOURATION [None]
  - MUSCLE SPASMS [None]
  - SURGERY [None]
  - LIMB INJURY [None]
  - BONE DENSITY DECREASED [None]
